FAERS Safety Report 24761398 (Version 1)
Quarter: 2024Q4

REPORT INFORMATION
  Report Type: Spontaneous
  Country: US (occurrence: US)
  Receive Date: 20241220
  Receipt Date: 20241220
  Transmission Date: 20250115
  Serious: No
  Sender: DR REDDYS
  Company Number: US-DRL-USA-SPO/USA/24/0018619

PATIENT
  Age: 17 Year
  Sex: Female

DRUGS (2)
  1. ZENATANE [Suspect]
     Active Substance: ISOTRETINOIN
     Indication: Acne
     Dosage: ZENATANE (ISOTRETINOIN CAPSULES, USP) CAPSULES 30 MG - DRL BOX OF 30 (3X10)?NDC NUMBER: 55111-0113-8
     Route: 065
  2. ZENATANE [Suspect]
     Active Substance: ISOTRETINOIN
     Dosage: ZENATANE (ISOTRETINOIN CAPSULES, USP) CAPSULES 40 MG?NDC NUMBER: 55111-0137-81
     Route: 065

REACTIONS (1)
  - Adverse event [Unknown]
